FAERS Safety Report 10837723 (Version 1)
Quarter: 2015Q1

REPORT INFORMATION
  Report Type: Spontaneous
  Country: US (occurrence: US)
  Receive Date: 20150219
  Receipt Date: 20150219
  Transmission Date: 20150721
  Serious: No
  Sender: FDA-Public Use
  Company Number: US-GLAXOSMITHKLINE-US2014GSK049685

PATIENT
  Sex: Female

DRUGS (4)
  1. ACITRETIN CAPSULE [Suspect]
     Active Substance: ACITRETIN
     Indication: PRODUCT USED FOR UNKNOWN INDICATION
     Dosage: 25 MG, U
     Dates: start: 2014, end: 201411
  2. SORIATANE [Suspect]
     Active Substance: ACITRETIN
     Dosage: 50 MG, U
     Dates: start: 201411, end: 201412
  3. SORIATANE [Suspect]
     Active Substance: ACITRETIN
     Indication: PRODUCT USED FOR UNKNOWN INDICATION
     Dosage: 25 MG, U
     Dates: start: 2014, end: 201411
  4. ACITRETIN CAPSULE [Suspect]
     Active Substance: ACITRETIN
     Dosage: 50 MG, U
     Dates: start: 201411, end: 201412

REACTIONS (3)
  - Skin exfoliation [Not Recovered/Not Resolved]
  - Alopecia [Not Recovered/Not Resolved]
  - Pain in extremity [Not Recovered/Not Resolved]
